FAERS Safety Report 5080912-9 (Version None)
Quarter: 2006Q3

REPORT INFORMATION
  Report Type: 
  Country: None (occurrence: None)
  Receive Date: 20060810
  Receipt Date: 20060724
  Transmission Date: 20061208
  Serious: Yes (Other)
  Sender: FDA-Public Use
  Company Number: 2006065821

PATIENT
  Age: 77 Year
  Sex: Female
  Weight: 82 kg

DRUGS (1)
  1. PEGAPTANIB SODIUM         (PEGAPTANIB SODIUM) [Suspect]
     Indication: MACULAR DEGENERATION
     Dosage: 0.3 MG, 1 IN 6 WK), INTRAVITREOUS
     Dates: start: 20060417

REACTIONS (3)
  - INTRAOCULAR PRESSURE INCREASED [None]
  - RETINAL HAEMORRHAGE [None]
  - VISUAL ACUITY REDUCED [None]
